FAERS Safety Report 8225459-3 (Version None)
Quarter: 2012Q1

REPORT INFORMATION
  Report Type: 
  Country: None (occurrence: None)
  Receive Date: 20120307
  Receipt Date: 20110127
  Transmission Date: 20120608
  Serious: No
  Sender: FDA-Public Use
  Company Number: PHHY2010US86167

PATIENT
  Sex: Female

DRUGS (12)
  1. LORISTA H (LOSARTAN/HYDROCHLOROTHIAZIDE) (HYDROCHLOROTHIAZIDE, LOSARTA [Concomitant]
  2. ATROPINE W/DIPHENOXYLATE (ATROPINE SULFATE, DIPHENOXYLATE HYDROCHLORID [Concomitant]
  3. MULTIVITAMINS 9ASCORBIC ACID, ERGOCALCIFEROL, FOLIC ACID, NICOTINAMIDE [Concomitant]
  4. EYEDROPS [Concomitant]
  5. VITAMIN B12 [Concomitant]
  6. CALCIUM CARBONATE [Concomitant]
  7. LUMIGAN [Concomitant]
  8. AFINITOR [Suspect]
     Indication: MALIGNANT NEOPLASM OF ISLETS OF LANGERHANS
     Dosage: 10 MG, QD, ORAL
     Route: 048
     Dates: start: 20101108
  9. GRANISETRON [Concomitant]
  10. CREON (AMYLASE, LIPASE, PANCREATIN, PROTEASE) [Concomitant]
  11. SIMVASTATIN [Concomitant]
  12. FISH OIL (FISH OIL) [Concomitant]

REACTIONS (4)
  - CONSTIPATION [None]
  - OEDEMA PERIPHERAL [None]
  - DIZZINESS [None]
  - DIARRHOEA [None]
